FAERS Safety Report 16718825 (Version 1)
Quarter: 2019Q3

REPORT INFORMATION
  Report Type: Spontaneous
  Country: US (occurrence: US)
  Receive Date: 20190702
  Receipt Date: 20190702
  Transmission Date: 20191005
  Serious: Yes (Life-Threatening, Disabling, Other)
  Sender: FDA-Public Use
  Company Number: None

PATIENT
  Age: 56 Year
  Sex: Female
  Weight: 86.18 kg

DRUGS (13)
  1. IMURAN [Concomitant]
     Active Substance: AZATHIOPRINE
  2. VITAMINS D [Concomitant]
  3. VITAMINS E [Concomitant]
  4. MAGNESIUM [Concomitant]
     Active Substance: MAGNESIUM
  5. CALCIUM [Concomitant]
     Active Substance: CALCIUM
  6. SOMADERM GEL TRANSDERMAL, MAIMUM STRENGTH HOMEOPATHIC HUMAN GROWTH HOR [Suspect]
     Active Substance: HOMEOPATHICS
     Indication: INSOMNIA
     Dosage: ?          QUANTITY:1 PUMP;?DURATION 2-3 WEEKS
     Route: 061
     Dates: start: 20181111, end: 20181130
  7. LASIX [Concomitant]
     Active Substance: FUROSEMIDE
  8. OMEPRAZOLE. [Concomitant]
     Active Substance: OMEPRAZOLE
  9. SOMADERM GEL TRANSDERMAL, MAIMUM STRENGTH HOMEOPATHIC HUMAN GROWTH HOR [Suspect]
     Active Substance: HOMEOPATHICS
     Indication: IMMUNE SYSTEM DISORDER
     Dosage: ?          QUANTITY:1 PUMP;?DURATION 2-3 WEEKS
     Route: 061
     Dates: start: 20181111, end: 20181130
  10. PREDNISONE. [Concomitant]
     Active Substance: PREDNISONE
  11. PROBIOTICS [Concomitant]
     Active Substance: PROBIOTICS NOS
  12. K-LOR [Concomitant]
     Active Substance: POTASSIUM CHLORIDE
  13. SOMADERM GEL TRANSDERMAL, MAIMUM STRENGTH HOMEOPATHIC HUMAN GROWTH HOR [Suspect]
     Active Substance: HOMEOPATHICS
     Indication: WEIGHT DECREASED
     Dosage: ?          QUANTITY:1 PUMP;?DURATION 2-3 WEEKS
     Route: 061
     Dates: start: 20181111, end: 20181130

REACTIONS (1)
  - Autoimmune hepatitis [None]

NARRATIVE: CASE EVENT DATE: 20181201
